FAERS Safety Report 23973366 (Version 1)
Quarter: 2024Q2

REPORT INFORMATION
  Report Type: Spontaneous
  Country: US (occurrence: None)
  Receive Date: 20240613
  Receipt Date: 20240613
  Transmission Date: 20240716
  Serious: No
  Sender: FDA-Public Use
  Company Number: US-MDD US Operations-MDD202309-003595

PATIENT
  Age: 63 Year
  Sex: Female
  Weight: 82.5 kg

DRUGS (7)
  1. APOKYN [Suspect]
     Active Substance: APOMORPHINE HYDROCHLORIDE
     Indication: Parkinson^s disease
     Dates: start: 20230825
  2. CARBIDOPA\LEVODOPA [Concomitant]
     Active Substance: CARBIDOPA\LEVODOPA
     Dosage: EACH DF CONTAINS 25-100MG
  3. METOPROLOL [Concomitant]
     Active Substance: METOPROLOL
     Dosage: 25MG
  4. XANAX [Concomitant]
     Active Substance: ALPRAZOLAM
     Dosage: 1MG
  5. TIZANIDINE [Concomitant]
     Active Substance: TIZANIDINE
     Dosage: 4MG
  6. SPIRONOLACTONE [Concomitant]
     Active Substance: SPIRONOLACTONE
     Dosage: 25 MG
  7. AMLODIPINE [Concomitant]
     Active Substance: AMLODIPINE BESYLATE
     Dosage: 5 MG

REACTIONS (1)
  - Contusion [Recovered/Resolved]
